FAERS Safety Report 14758349 (Version 1)
Quarter: 2018Q2

REPORT INFORMATION
  Report Type: Spontaneous
  Country: PT (occurrence: PT)
  Receive Date: 20180413
  Receipt Date: 20180413
  Transmission Date: 20180711
  Serious: Yes (Other)
  Sender: FDA-Public Use
  Company Number: PT-FRESENIUS KABI-FK201804564

PATIENT
  Age: 28 Year
  Sex: Female

DRUGS (4)
  1. NATALIZUMAB [Suspect]
     Active Substance: NATALIZUMAB
     Indication: RELAPSING-REMITTING MULTIPLE SCLEROSIS
     Route: 065
     Dates: start: 2014
  2. INTERFERON BETA-1A [Suspect]
     Active Substance: INTERFERON BETA-1A
     Indication: RELAPSING-REMITTING MULTIPLE SCLEROSIS
     Route: 065
     Dates: start: 2005, end: 2012
  3. INTERFERON BETA-1A [Suspect]
     Active Substance: INTERFERON BETA-1A
     Route: 065
     Dates: start: 2012
  4. METHYLPREDNISOLONE (MANUFACTURER UNKNOWN) [Suspect]
     Active Substance: METHYLPREDNISOLONE
     Indication: RELAPSING-REMITTING MULTIPLE SCLEROSIS
     Route: 065

REACTIONS (2)
  - Autoimmune hepatitis [Recovered/Resolved]
  - Hepatic failure [Recovered/Resolved]
